FAERS Safety Report 23910502 (Version 2)
Quarter: 2024Q3

REPORT INFORMATION
  Report Type: Spontaneous
  Country: US (occurrence: US)
  Receive Date: 20240528
  Receipt Date: 20240822
  Transmission Date: 20241016
  Serious: No
  Sender: AVADEL CNS PHARMA
  Company Number: US-AVADEL CNS PHARMACEUTICALS, LLC-2024AVA00443

PATIENT
  Sex: Female
  Weight: 67.12 kg

DRUGS (10)
  1. LUMRYZ [Suspect]
     Active Substance: SODIUM OXYBATE
     Indication: Hypersomnia
     Dosage: 4.5 G, ONCE NIGHTLY
     Route: 048
     Dates: start: 202403, end: 20240318
  2. LUMRYZ [Suspect]
     Active Substance: SODIUM OXYBATE
     Indication: Narcolepsy
     Dosage: 4.5 G, ONCE NIGHTLY
     Route: 048
     Dates: start: 20240505, end: 20240505
  3. LUMRYZ [Suspect]
     Active Substance: SODIUM OXYBATE
     Indication: Hypersomnia
     Dosage: 6 G, ONCE NIGHTLY
     Route: 048
     Dates: start: 20240319, end: 20240319
  4. LUMRYZ [Suspect]
     Active Substance: SODIUM OXYBATE
     Indication: Narcolepsy
  5. REGLAN [Suspect]
     Active Substance: METOCLOPRAMIDE HYDROCHLORIDE
     Indication: Nausea
     Dosage: UNK
     Dates: start: 20240315, end: 20240317
  6. REGLAN [Suspect]
     Active Substance: METOCLOPRAMIDE HYDROCHLORIDE
     Indication: Vomiting
  7. VRAYLAR [Suspect]
     Active Substance: CARIPRAZINE
     Indication: Antipsychotic therapy
     Dosage: UNK, 1X/DAY, IN THE MORNING
     Dates: end: 202403
  8. VRAYLAR [Suspect]
     Active Substance: CARIPRAZINE
     Dosage: UNK LOWER DOSE, 1X/DAY, IN THE AFTERNOON
     Dates: start: 202403
  9. UNSPECIFIED DAILY MEDICATIONS [Concomitant]
     Dosage: UNK
  10. UNSPECIFIED MEDICATION FOR POTS [Concomitant]

REACTIONS (39)
  - Insomnia [Recovering/Resolving]
  - Migraine [Not Recovered/Not Resolved]
  - Slow speech [Recovered/Resolved]
  - Mental impairment [Recovered/Resolved]
  - Judgement impaired [Recovered/Resolved]
  - Dysgeusia [Recovering/Resolving]
  - Middle insomnia [Recovering/Resolving]
  - Palpitations [Recovering/Resolving]
  - Micturition urgency [Unknown]
  - Gait disturbance [Unknown]
  - Myalgia [Recovering/Resolving]
  - Stiff person syndrome [Unknown]
  - Cardiac flutter [Unknown]
  - Heart rate irregular [Recovering/Resolving]
  - Muscle rigidity [Unknown]
  - Muscle tightness [Recovering/Resolving]
  - Dyspnoea [Not Recovered/Not Resolved]
  - Fatigue [Not Recovered/Not Resolved]
  - Initial insomnia [Recovering/Resolving]
  - Movement disorder [Recovering/Resolving]
  - Postural orthostatic tachycardia syndrome [Recovering/Resolving]
  - Aphasia [Recovering/Resolving]
  - Autoimmune disorder [Recovering/Resolving]
  - Respiratory rate increased [Recovering/Resolving]
  - Hypersomnia [Recovering/Resolving]
  - Therapeutic response unexpected [Unknown]
  - Enuresis [Recovered/Resolved]
  - Hyperhidrosis [Not Recovered/Not Resolved]
  - Nausea [Recovered/Resolved]
  - Vomiting [Recovered/Resolved]
  - Diarrhoea [Unknown]
  - Headache [Unknown]
  - Abdominal pain upper [Not Recovered/Not Resolved]
  - Muscle spasms [Recovering/Resolving]
  - Pain in extremity [Recovering/Resolving]
  - Pain [Recovering/Resolving]
  - Therapeutic product effect delayed [Recovered/Resolved]
  - Drug interaction [Recovered/Resolved]
  - Off label use [Recovered/Resolved]

NARRATIVE: CASE EVENT DATE: 20240101
